FAERS Safety Report 7625721-9 (Version None)
Quarter: 2011Q3

REPORT INFORMATION
  Report Type: 
  Country: None (occurrence: None)
  Receive Date: 20110713
  Receipt Date: 20110706
  Transmission Date: 20111222
  Serious: Yes (Hospitalization)
  Sender: FDA-Public Use
  Company Number: WAES 1103USA01264

PATIENT
  Age: 35 Year
  Sex: Male

DRUGS (9)
  1. ZERIT [Concomitant]
  2. EPIVIR [Concomitant]
  3. INTELENCE [Suspect]
     Indication: HIV INFECTION
     Dosage: 400 MG/DAILY PO
     Route: 048
     Dates: start: 20091229
  4. ANTIHEMOPHILIC FACTOR (HUMAN) [Concomitant]
  5. PEGINTERFERON ALFA-2A [Concomitant]
  6. VIRACEPT [Concomitant]
  7. ISENTRESS [Suspect]
     Indication: HIV INFECTION
     Dosage: 800 MG/DAILY PO
     Route: 048
     Dates: start: 20091229
  8. EPZICOM [Suspect]
     Indication: HIV INFECTION
     Dosage: 1 TAB/DAILY PO
     Route: 048
     Dates: start: 20091229
  9. URSO 250 [Concomitant]

REACTIONS (2)
  - HAEMORRHAGIC DIATHESIS [None]
  - HAEMATOMA [None]
